FAERS Safety Report 8480398-8 (Version None)
Quarter: 2012Q3

REPORT INFORMATION
  Report Type: 
  Country: None (occurrence: None)
  Receive Date: 20120702
  Receipt Date: 20120627
  Transmission Date: 20120928
  Serious: Yes (Other)
  Sender: FDA-Public Use
  Company Number: US-AMGEN-USASP2012038279

PATIENT
  Sex: Female

DRUGS (4)
  1. PROLIA [Suspect]
     Indication: OSTEOPOROSIS POSTMENOPAUSAL
     Dosage: UNK UNK, Q6MO
     Dates: start: 20110101
  2. SAVELLA [Concomitant]
     Indication: SPINAL PAIN
  3. PLAVIX [Concomitant]
     Dosage: UNK
  4. CELEXA [Concomitant]
     Indication: SPINAL PAIN

REACTIONS (6)
  - SKIN INFECTION [None]
  - RASH GENERALISED [None]
  - IMPAIRED HEALING [None]
  - PYREXIA [None]
  - SKIN ULCER [None]
  - SKIN REACTION [None]
